FAERS Safety Report 6701568-2 (Version None)
Quarter: 2010Q2

REPORT INFORMATION
  Report Type: 
  Country: None (occurrence: None)
  Receive Date: 20100429
  Receipt Date: 20100422
  Transmission Date: 20101027
  Serious: Yes (Other)
  Sender: FDA-Public Use
  Company Number: US-ASTRAZENECA-2005UW11953

PATIENT
  Age: 57 Year
  Sex: Female
  Weight: 61.2 kg

DRUGS (13)
  1. SEROQUEL [Suspect]
     Indication: SLEEP DISORDER
     Dosage: OFF AND ON
     Route: 048
     Dates: start: 20050101, end: 20050811
  2. SEROQUEL [Suspect]
     Route: 048
     Dates: start: 20051101
  3. SEROQUEL [Suspect]
     Route: 048
  4. SEROQUEL [Suspect]
     Route: 048
     Dates: start: 20070101, end: 20080501
  5. SEROQUEL [Suspect]
     Route: 048
  6. SEROQUEL [Suspect]
     Dosage: 50 AND 150 MG DEPENDING ON HER NEED
     Route: 048
     Dates: end: 20100417
  7. KLONOPIN [Concomitant]
  8. ZANAFLEX [Concomitant]
  9. AVELOX [Concomitant]
  10. METHOTREXATE [Concomitant]
  11. AVONEX [Concomitant]
  12. CHLORAL HYDRATE [Concomitant]
  13. FOSAMAX [Concomitant]

REACTIONS (17)
  - BLADDER DISORDER [None]
  - BLOOD GLUCOSE ABNORMAL [None]
  - BLOOD GLUCOSE INCREASED [None]
  - BULIMIA NERVOSA [None]
  - CONSTIPATION [None]
  - CYSTITIS [None]
  - DRUG ABUSE [None]
  - DRUG DOSE OMISSION [None]
  - FAECALOMA [None]
  - FATIGUE [None]
  - GAIT DISTURBANCE [None]
  - INCONTINENCE [None]
  - INCREASED APPETITE [None]
  - INSOMNIA [None]
  - MULTIPLE SCLEROSIS [None]
  - SOMNOLENCE [None]
  - WEIGHT INCREASED [None]
